FAERS Safety Report 16804500 (Version 1)
Quarter: 2019Q3

REPORT INFORMATION
  Report Type: Spontaneous
  Country: US (occurrence: US)
  Receive Date: 20190913
  Receipt Date: 20190913
  Transmission Date: 20191005
  Serious: Yes (Hospitalization)
  Sender: FDA-Public Use
  Company Number: US-MYLANLABS-2019M1084491

PATIENT
  Age: 4 Decade
  Sex: Female

DRUGS (2)
  1. BEVACIZUMAB. [Suspect]
     Active Substance: BEVACIZUMAB
     Indication: HAEMANGIOPERICYTOMA
     Route: 065
  2. TEMOZOLOMIDE. [Suspect]
     Active Substance: TEMOZOLOMIDE
     Indication: HAEMANGIOPERICYTOMA
     Route: 065

REACTIONS (3)
  - Post embolisation syndrome [Unknown]
  - Vomiting [Unknown]
  - Nausea [Unknown]
